FAERS Safety Report 23640496 (Version 3)
Quarter: 2024Q2

REPORT INFORMATION
  Report Type: Spontaneous
  Country: US (occurrence: US)
  Receive Date: 20240318
  Receipt Date: 20240628
  Transmission Date: 20240716
  Serious: Yes (Other)
  Sender: FDA-Public Use
  Company Number: US-JNJFOC-20240330729

PATIENT
  Sex: Male

DRUGS (11)
  1. XARELTO [Suspect]
     Active Substance: RIVAROXABAN
     Indication: Cerebrovascular accident
     Route: 065
     Dates: start: 202302, end: 20240206
  2. METOPROLOL [Concomitant]
     Active Substance: METOPROLOL
  3. ATORVASTATIN [Concomitant]
     Active Substance: ATORVASTATIN
  4. FISH OIL [Concomitant]
     Active Substance: FISH OIL
     Dosage: FISH OIL--- 1 CAP DAILY. OMEGA 3, 6, 9-800MG EACH
  5. LACTOBACILLUS ACIDOPHILUS [Concomitant]
     Active Substance: LACTOBACILLUS ACIDOPHILUS
     Dosage: 20 BILLION ACTIVE PROBIOTIC CULTURES---1 CAP IN THE MORNING.
  6. CHIA SEED [Concomitant]
     Dosage: ONE TBSP IN MORNING AND ONE AT NIGHT.
  7. LATANOPROST [Concomitant]
     Active Substance: LATANOPROST
     Indication: Glaucoma
     Dosage: LATANOPROST O/S 0.005%---ONCE PER DAY (ONE DROP IN RIGHT EYE FOR GLAUCOMA)
  8. CURCUMIN [Concomitant]
     Active Substance: CURCUMIN
     Dosage: CURCUMIN---1950 MG. ONE CAP IN THE MORNING AND ONE CAP AT NIGHT.
  9. UBIQUINOL [Concomitant]
     Active Substance: UBIQUINOL
     Dosage: UBIQUINOL COQ10 ONCE DAILY.
  10. VITAMIN B COMPLEX [Concomitant]
     Active Substance: CYANOCOBALAMIN\DEXPANTHENOL\NIACINAMIDE\PYRIDOXINE HYDROCHLORIDE\RIBOFLAVIN 5^-PHOSPHATE SODIUM\THIA
     Dosage: B COMPLEX---ONCE IN MORNING
  11. VITAMINS [Concomitant]
     Active Substance: VITAMINS

REACTIONS (1)
  - Haemorrhage urinary tract [Recovered/Resolved]
